FAERS Safety Report 7870173-7 (Version None)
Quarter: 2011Q4

REPORT INFORMATION
  Report Type: 
  Country: None (occurrence: None)
  Receive Date: 20111028
  Receipt Date: 20111028
  Transmission Date: 20120403
  Serious: Yes (Hospitalization)
  Sender: FDA-Public Use
  Company Number: None

PATIENT
  Sex: Female
  Weight: 85.7 kg

DRUGS (3)
  1. FLUOROURACIL [Suspect]
     Dosage: 5880 MG
  2. CISPLATIN [Suspect]
     Dosage: 110 MG
  3. ERBITUX [Suspect]
     Dosage: 980 MG

REACTIONS (3)
  - URINARY TRACT INFECTION [None]
  - DIARRHOEA [None]
  - NAUSEA [None]
